FAERS Safety Report 17742534 (Version 22)
Quarter: 2021Q3

REPORT INFORMATION
  Report Type: Report from Study
  Country: CA (occurrence: CA)
  Receive Date: 20200504
  Receipt Date: 20210923
  Transmission Date: 20211014
  Serious: Yes (Hospitalization, Other)
  Sender: FDA-Public Use
  Company Number: NVSC2020CA112011

PATIENT
  Age: 59 Year
  Sex: Female

DRUGS (15)
  1. SANDOSTATIN LAR DEPOT [Suspect]
     Active Substance: OCTREOTIDE ACETATE
     Indication: NEUROENDOCRINE TUMOUR
     Dosage: 30 MG, Q4W
     Route: 030
     Dates: start: 20200327, end: 20200721
  2. SANDOSTATIN LAR DEPOT [Suspect]
     Active Substance: OCTREOTIDE ACETATE
     Indication: CARCINOID TUMOUR
     Dosage: 20 MG, QMO
     Route: 030
     Dates: start: 20200327
  3. SANDOSTATIN LAR DEPOT [Suspect]
     Active Substance: OCTREOTIDE ACETATE
     Dosage: 20 MG, Q4W
     Route: 030
  4. GLUCOPHAGE [Concomitant]
     Active Substance: METFORMIN HYDROCHLORIDE
     Dosage: 2000 MG, QD
     Route: 065
     Dates: start: 202106
  5. METFORMIN [Concomitant]
     Active Substance: METFORMIN HYDROCHLORIDE
     Indication: PRODUCT USED FOR UNKNOWN INDICATION
     Dosage: 1000 MG, QD
     Route: 065
     Dates: start: 20210723
  6. SANDOSTATIN LAR DEPOT [Suspect]
     Active Substance: OCTREOTIDE ACETATE
     Dosage: 20 MG, Q4W
     Route: 030
     Dates: start: 20210604
  7. GLUCOPHAGE [Concomitant]
     Active Substance: METFORMIN HYDROCHLORIDE
     Indication: DIABETES MELLITUS
     Dosage: 1 DF, BID
     Route: 048
     Dates: start: 202009
  8. SANDOSTATIN LAR DEPOT [Suspect]
     Active Substance: OCTREOTIDE ACETATE
     Dosage: 10 MG, Q4W
     Route: 065
     Dates: start: 20210421
  9. SANDOSTATIN LAR DEPOT [Suspect]
     Active Substance: OCTREOTIDE ACETATE
     Dosage: Q4W
     Route: 030
  10. SANDOSTATIN LAR DEPOT [Suspect]
     Active Substance: OCTREOTIDE ACETATE
     Dosage: 30 MG, Q4W
     Route: 030
     Dates: start: 20210630
  11. SANDOSTATIN [Suspect]
     Active Substance: OCTREOTIDE ACETATE
     Indication: NEUROENDOCRINE TUMOUR
  12. BENADRYL [Concomitant]
     Active Substance: DIPHENHYDRAMINE HYDROCHLORIDE
     Indication: PRODUCT USED FOR UNKNOWN INDICATION
     Dosage: UNK
     Route: 065
  13. SANDOSTATIN LAR DEPOT [Suspect]
     Active Substance: OCTREOTIDE ACETATE
     Dosage: 10 MG (ONCE)
     Route: 030
  14. SANDOSTATIN [Suspect]
     Active Substance: OCTREOTIDE ACETATE
     Indication: CARCINOID TUMOUR
     Dosage: UNK (UG)
     Route: 058
     Dates: start: 202003, end: 202003
  15. SANDOSTATIN LAR DEPOT [Suspect]
     Active Substance: OCTREOTIDE ACETATE
     Dosage: 20 MG
     Route: 065

REACTIONS (44)
  - Flushing [Unknown]
  - Reflux gastritis [Unknown]
  - Vaginal infection [Unknown]
  - Weight decreased [Unknown]
  - Stress [Unknown]
  - Malaise [Unknown]
  - Rash [Recovering/Resolving]
  - Urticaria [Unknown]
  - Abdominal pain upper [Unknown]
  - Illness [Unknown]
  - Metastases to soft tissue [Unknown]
  - Metastatic lymphoma [Unknown]
  - Erythema [Unknown]
  - Pain in extremity [Unknown]
  - Chills [Unknown]
  - Headache [Recovered/Resolved]
  - Hepatic cirrhosis [Unknown]
  - Colon cancer metastatic [Unknown]
  - Diarrhoea [Recovered/Resolved]
  - Sleep disorder [Unknown]
  - Chest discomfort [Unknown]
  - Nausea [Recovered/Resolved]
  - Heart rate increased [Unknown]
  - Injection site pain [Unknown]
  - Neuroendocrine tumour [Unknown]
  - Drug ineffective [Unknown]
  - Synovial cyst [Unknown]
  - Pruritus [Unknown]
  - Vomiting [Unknown]
  - Urinary retention [Unknown]
  - Hypertension [Unknown]
  - Feeling of body temperature change [Unknown]
  - Mass [Unknown]
  - Feeling hot [Unknown]
  - Blood glucose increased [Unknown]
  - Second primary malignancy [Unknown]
  - Malignant neoplasm progression [Unknown]
  - Hot flush [Unknown]
  - Fatigue [Unknown]
  - Nausea [Recovered/Resolved]
  - Alopecia [Unknown]
  - Bladder obstruction [Unknown]
  - Pain [Unknown]
  - Breast mass [Unknown]

NARRATIVE: CASE EVENT DATE: 2020
